FAERS Safety Report 19470617 (Version 2)
Quarter: 2021Q3

REPORT INFORMATION
  Report Type: Report from Study
  Country: ES (occurrence: ES)
  Receive Date: 20210628
  Receipt Date: 20210726
  Transmission Date: 20211014
  Serious: Yes (Death, Hospitalization)
  Sender: FDA-Public Use
  Company Number: ES-JAZZ-2021-ES-011154

PATIENT
  Age: 60 Year
  Sex: Male
  Weight: 77.4 kg

DRUGS (12)
  1. TRIMETHOPRIM. [Concomitant]
     Active Substance: TRIMETHOPRIM
     Dosage: UNK
     Dates: start: 20210505
  2. ATORVASTATIN [Concomitant]
     Active Substance: ATORVASTATIN
     Dosage: UNK
     Dates: start: 20210505
  3. ALPRAZOLAM. [Concomitant]
     Active Substance: ALPRAZOLAM
     Dosage: UNK
     Dates: start: 20210505
  4. SEPTRIN [Concomitant]
     Active Substance: SULFAMETHOXAZOLE\TRIMETHOPRIM
     Dosage: UNK
     Dates: start: 20210515
  5. HIBOR [Concomitant]
     Dosage: UNK
     Dates: start: 202008
  6. IRINOTECAN [Suspect]
     Active Substance: IRINOTECAN
     Dosage: 60 MILLIGRAM/SQ. METER, D1D8Q3W
     Route: 042
     Dates: start: 20210526, end: 20210602
  7. SULFAMETHOXAZOLE [Concomitant]
     Active Substance: SULFAMETHOXAZOLE
     Dosage: UNK
     Dates: start: 20210505
  8. LURBINECTEDIN [Suspect]
     Active Substance: LURBINECTEDIN
     Indication: SMALL CELL LUNG CANCER
     Dosage: 2 MILLIGRAM/SQ. METER, D1Q3W
     Route: 042
     Dates: start: 20210505, end: 20210526
  9. IRINOTECAN [Suspect]
     Active Substance: IRINOTECAN
     Indication: SMALL CELL LUNG CANCER
     Dosage: 75 MILLIGRAM/SQ. METER, D1D8Q3W
     Route: 042
     Dates: start: 20210505, end: 20210512
  10. PANTOPRAZOLE [Concomitant]
     Active Substance: PANTOPRAZOLE
     Dosage: UNK
     Dates: start: 20210415
  11. DEXAMETHASONE. [Concomitant]
     Active Substance: DEXAMETHASONE
     Dosage: UNK
     Dates: start: 20210415
  12. ONDANSETRON [Concomitant]
     Active Substance: ONDANSETRON
     Dosage: UNK
     Dates: start: 20210521

REACTIONS (1)
  - General physical health deterioration [Fatal]

NARRATIVE: CASE EVENT DATE: 20210613
